FAERS Safety Report 14850056 (Version 1)
Quarter: 2018Q2

REPORT INFORMATION
  Report Type: Spontaneous
  Country: US (occurrence: US)
  Receive Date: 20180504
  Receipt Date: 20180504
  Transmission Date: 20180711
  Serious: No
  Sender: FDA-Public Use
  Company Number: US-BIOMARINAP-US-2018-117954

PATIENT
  Age: 47 Year
  Sex: Female
  Weight: 99.77 kg

DRUGS (7)
  1. TOVIAZ [Concomitant]
     Active Substance: FESOTERODINE FUMARATE
  2. MONTELUKAST [Concomitant]
     Active Substance: MONTELUKAST SODIUM
  3. OMEPRAZOLE. [Concomitant]
     Active Substance: OMEPRAZOLE
  4. LORATADINE. [Concomitant]
     Active Substance: LORATADINE
  5. MELOXICAM. [Concomitant]
     Active Substance: MELOXICAM
  6. VITAMIN D                          /00107901/ [Concomitant]
     Active Substance: ERGOCALCIFEROL
  7. VIMIZIM [Suspect]
     Active Substance: ELOSULFASE ALFA
     Indication: MUCOPOLYSACCHARIDOSIS IV
     Dosage: UNK, QW
     Route: 065
     Dates: start: 20140623

REACTIONS (2)
  - Arthritis [Unknown]
  - Proctalgia [Recovering/Resolving]

NARRATIVE: CASE EVENT DATE: 20180414
